FAERS Safety Report 7378992-0 (Version None)
Quarter: 2011Q1

REPORT INFORMATION
  Report Type: 
  Country: None (occurrence: None)
  Receive Date: 20110328
  Receipt Date: 20110315
  Transmission Date: 20110831
  Serious: Yes (Other)
  Sender: FDA-Public Use
  Company Number: US-ELI_LILLY_AND_COMPANY-US201101001792

PATIENT
  Age: 75 Year
  Sex: Male

DRUGS (2)
  1. ANTIHYPERTENSIVES [Concomitant]
     Dosage: UNK, UNKNOWN
     Route: 065
  2. FORTEO [Suspect]
     Indication: OSTEOPOROSIS
     Dosage: 20 UG, DAILY (1/D)
     Route: 065

REACTIONS (13)
  - ECCHYMOSIS [None]
  - CARDIAC MURMUR [None]
  - DYSPNOEA EXERTIONAL [None]
  - DYSPNOEA [None]
  - ACCIDENT AT HOME [None]
  - LETHARGY [None]
  - HEART VALVE INCOMPETENCE [None]
  - CONTUSION [None]
  - JOINT DISLOCATION [None]
  - SKELETAL INJURY [None]
  - INJURY [None]
  - SWELLING [None]
  - FALL [None]
